FAERS Safety Report 18893972 (Version 1)
Quarter: 2021Q1

REPORT INFORMATION
  Report Type: Report from Study
  Country: US (occurrence: US)
  Receive Date: 20210215
  Receipt Date: 20210215
  Transmission Date: 20210420
  Serious: Yes (Death)
  Sender: FDA-Public Use
  Company Number: US-ASTRAZENECA-2021A051537

PATIENT
  Sex: Male

DRUGS (1)
  1. QTERN [Suspect]
     Active Substance: DAPAGLIFLOZIN\SAXAGLIPTIN HYDROCHLORIDE
     Dosage: 10 MG OVER 5 MG TABLET, DISPENSE 1 DAILY
     Route: 048

REACTIONS (1)
  - Death [Fatal]
